FAERS Safety Report 9765175 (Version 1)
Quarter: 2013Q4

REPORT INFORMATION
  Report Type: Spontaneous
  Country: US (occurrence: US)
  Receive Date: 20131217
  Receipt Date: 20131217
  Transmission Date: 20140711
  Serious: No
  Sender: FDA-Public Use
  Company Number: US-GLAXOSMITHKLINE-A1000767A

PATIENT
  Age: 59 Year
  Sex: Male
  Weight: 62 kg

DRUGS (9)
  1. VOTRIENT [Suspect]
     Indication: RENAL CANCER
     Dosage: 800MG PER DAY
     Route: 048
     Dates: start: 20120904
  2. VERAPAMIL [Concomitant]
  3. AMLODIPINE [Concomitant]
  4. LISINOPRIL [Concomitant]
  5. PRAVACHOL [Concomitant]
  6. DIGOXIN [Concomitant]
  7. GLIPIZIDE [Concomitant]
  8. SUTENT [Concomitant]
  9. TORISEL [Concomitant]

REACTIONS (1)
  - Hyperhidrosis [Unknown]
